FAERS Safety Report 4975761-3 (Version None)
Quarter: 2006Q2

REPORT INFORMATION
  Report Type: 
  Country: None (occurrence: None)
  Receive Date: 20060411
  Receipt Date: 20060323
  Transmission Date: 20061013
  Serious: Yes (Hospitalization)
  Sender: FDA-Public Use
  Company Number: ES200603005945

PATIENT
  Age: 77 Year
  Sex: Female

DRUGS (4)
  1. FORTEO [Suspect]
     Indication: OSTEOPOROSIS
     Dosage: 20 UG, DAILY (1/D), SUBCUTANEOUS
     Route: 058
     Dates: start: 20051219, end: 20060319
  2. CALCIUM GLUCONATE [Concomitant]
  3. LEXATIN (BROMAZEPAM) [Concomitant]
  4. TORADOL [Concomitant]

REACTIONS (1)
  - ANAL HAEMORRHAGE [None]
